FAERS Safety Report 6305210-4 (Version None)
Quarter: 2009Q3

REPORT INFORMATION
  Report Type: 
  Country: None (occurrence: None)
  Receive Date: 20090810
  Receipt Date: 20090810
  Transmission Date: 20100115
  Serious: Yes (Other)
  Sender: FDA-Public Use
  Company Number: None

PATIENT
  Sex: Female
  Weight: 53.5244 kg

DRUGS (1)
  1. NADOLOL [Suspect]
     Indication: HYPERTENSION
     Dosage: 20MG QD PO
     Route: 048
     Dates: start: 20010101

REACTIONS (4)
  - CHEST PAIN [None]
  - PALPITATIONS [None]
  - PRODUCT SUBSTITUTION ISSUE [None]
  - URTICARIA [None]
